FAERS Safety Report 23980024 (Version 3)
Quarter: 2024Q3

REPORT INFORMATION
  Report Type: Report from Study
  Country: ZA (occurrence: ZA)
  Receive Date: 20240617
  Receipt Date: 20240702
  Transmission Date: 20241017
  Serious: No
  Sender: CELLTRION
  Company Number: ZA-ADCOCK INGRAM-2024ZA005068

PATIENT

DRUGS (3)
  1. INFLIXIMAB [Suspect]
     Active Substance: INFLIXIMAB
     Indication: Rheumatoid arthritis
     Dosage: 200 MILLIGRAM EVERY 6 WEEKS
     Route: 042
  2. PREDNISONE [Concomitant]
     Active Substance: PREDNISONE
     Indication: Rheumatoid arthritis
     Dosage: 40 MG DAILY
     Route: 048
     Dates: start: 20000101
  3. SULFASALAZINE [Concomitant]
     Active Substance: SULFASALAZINE
     Indication: Rheumatoid arthritis
     Dosage: 1500 MG
     Dates: start: 20100101

REACTIONS (11)
  - Disease recurrence [Unknown]
  - Synovitis [Unknown]
  - Rash [Recovering/Resolving]
  - Headache [Recovering/Resolving]
  - Fatigue [Unknown]
  - Pruritus [Recovering/Resolving]
  - Influenza [Recovering/Resolving]
  - Therapeutic response shortened [Unknown]
  - Intentional product use issue [Unknown]
  - Intentional dose omission [Recovering/Resolving]
  - Underdose [Unknown]

NARRATIVE: CASE EVENT DATE: 20240503
